FAERS Safety Report 23611055 (Version 1)
Quarter: 2024Q1

REPORT INFORMATION
  Report Type: Spontaneous
  Country: US (occurrence: US)
  Receive Date: 20240308
  Receipt Date: 20240308
  Transmission Date: 20240410
  Serious: Yes (Other)
  Sender: FDA-Public Use
  Company Number: US-AMGEN-USASP2024042180

PATIENT

DRUGS (76)
  1. XGEVA [Suspect]
     Active Substance: DENOSUMAB
     Indication: Breast cancer female
     Dosage: UNK
     Route: 065
  2. XGEVA [Suspect]
     Active Substance: DENOSUMAB
     Indication: Bone cancer
  3. IBRANCE [Suspect]
     Active Substance: PALBOCICLIB
     Indication: Breast cancer female
     Dosage: 125 MILLIGRAM (DAY 1-21, Q28 DAYS UNTIL INTOLERANCE OR PROGRESSION)
     Route: 048
     Dates: start: 20200707
  4. IBRANCE [Suspect]
     Active Substance: PALBOCICLIB
     Indication: Bone cancer
     Dosage: DELAYED DUE TO INSURANCE
     Route: 048
     Dates: start: 20200915
  5. IBRANCE [Suspect]
     Active Substance: PALBOCICLIB
     Dosage: DELAYED DUE TO NEUTROPENIA
     Route: 048
     Dates: start: 20201022
  6. IBRANCE [Suspect]
     Active Substance: PALBOCICLIB
     Dosage: DELAYED DUE TO NEUTROPENIA
     Route: 048
     Dates: start: 20201201
  7. IBRANCE [Suspect]
     Active Substance: PALBOCICLIB
     Dosage: UNK
     Route: 048
     Dates: start: 20201229
  8. IBRANCE [Suspect]
     Active Substance: PALBOCICLIB
     Dosage: DOSE REDUCED TO 100MG DUE TO CYTOPENIAS. DELAY AND DOSE REDUCTION DUE TO CYTOPENIAS
     Route: 048
     Dates: start: 20210204
  9. IBRANCE [Suspect]
     Active Substance: PALBOCICLIB
     Dosage: DOSE REDUCED TO 100MG DUE TO CYTOPENIAS. DELAY AND DOSE REDUCTION DUE TO CYTOPENIAS
     Route: 048
     Dates: start: 20210204
  10. IBRANCE [Suspect]
     Active Substance: PALBOCICLIB
     Dosage: DOSE REDUCED TO 100MG DUE TO CYTOPENIAS
     Route: 048
     Dates: start: 20210304
  11. IBRANCE [Suspect]
     Active Substance: PALBOCICLIB
     Dosage: DOSE REDUCED TO 100MG DUE TO CYTOPENIAS
     Route: 048
     Dates: start: 20210401
  12. IBRANCE [Suspect]
     Active Substance: PALBOCICLIB
     Dosage: DOSE REDUCED TO 100 MG DUE TO CYTOPENIAS. - DELAYED DUE TO CYTOPENIAS AND PATIENT CONFUSION
     Route: 048
     Dates: start: 20210513
  13. IBRANCE [Suspect]
     Active Substance: PALBOCICLIB
     Dosage: DELAYED DUE TO NEUTROPENIA AND INSURANCE
     Route: 048
     Dates: start: 20210622
  14. IBRANCE [Suspect]
     Active Substance: PALBOCICLIB
     Dosage: DELAYED DUE TO NEUTROPENIA AND INSURANCE
     Route: 048
     Dates: start: 20210728
  15. IBRANCE [Suspect]
     Active Substance: PALBOCICLIB
     Dosage: DOSE REDUCED TO 100MG DUE TO CYTOPENIAS
     Route: 048
     Dates: start: 20210829
  16. IBRANCE [Suspect]
     Active Substance: PALBOCICLIB
     Dosage: DOSE REDUCED TO 100MG DUE TO CYTOPENIAS
     Route: 048
     Dates: start: 20211004
  17. IBRANCE [Suspect]
     Active Substance: PALBOCICLIB
     Dosage: DOSE REDUCED TO 100MG DUE TO CYTOPENIAS
     Route: 048
     Dates: start: 20211101
  18. IBRANCE [Suspect]
     Active Substance: PALBOCICLIB
     Dosage: DOSE REDUCED TO 100MG DUE TO CYTOPENIAS
     Route: 048
     Dates: start: 20211129
  19. IBRANCE [Suspect]
     Active Substance: PALBOCICLIB
     Dosage: DOSE REDUCED TO 100MG VS 75MG DUE TO CYTOPENIAS
     Route: 048
     Dates: start: 20220127
  20. IBRANCE [Suspect]
     Active Substance: PALBOCICLIB
     Dosage: DOSE REDUCED TO 100MG
     Route: 048
     Dates: start: 20220224
  21. IBRANCE [Suspect]
     Active Substance: PALBOCICLIB
     Dosage: DOSE REDUCED TO 100MG,- DELAY DUE TO ADMIT.
     Route: 048
     Dates: start: 20220406
  22. IBRANCE [Suspect]
     Active Substance: PALBOCICLIB
     Dosage: DOSE REDUCED TO 100MG DUE TO CYTOPENIAS
     Route: 048
     Dates: start: 20220504
  23. IBRANCE [Suspect]
     Active Substance: PALBOCICLIB
     Dosage: DOSE REDUCED TO 100MG DUE TO CYTOPENIAS.
     Route: 048
     Dates: start: 20220622
  24. IBRANCE [Suspect]
     Active Substance: PALBOCICLIB
     Dosage: DOSE REDUCED TO 75MG DUE TO CYTOPENIAS- DELAY DUE TO CYTOPENIAS AND INSURANCE
     Route: 048
     Dates: start: 20221002
  25. IBRANCE [Suspect]
     Active Substance: PALBOCICLIB
     Dosage: DOSE REDUCED TO 75MG DUE TO CYTOPENIAS
     Route: 048
     Dates: start: 20221031
  26. IBRANCE [Suspect]
     Active Substance: PALBOCICLIB
     Dosage: DOSE REDUCED TO 75MG DUE TO CYTOPENIAS
     Route: 048
     Dates: start: 20221205
  27. IBRANCE [Suspect]
     Active Substance: PALBOCICLIB
     Dosage: DOSE REDUCED TO 75MG DUE TO CYTOPENIAS
     Route: 048
     Dates: start: 20230103
  28. IBRANCE [Suspect]
     Active Substance: PALBOCICLIB
     Dosage: DOSE REDUCED TO 75MG DUE TO CYTOPENIAS
     Route: 048
     Dates: start: 20230207
  29. IBRANCE [Suspect]
     Active Substance: PALBOCICLIB
     Dosage: DOSE REDUCED TO 75MG DUE TO CYTOPENIAS
     Route: 048
     Dates: start: 20230307
  30. IBRANCE [Suspect]
     Active Substance: PALBOCICLIB
     Dosage: DOSE REDUCED TO 75MG DUE TO CYTOPENIAS, DELAYED DUE TO INSURANCE
     Route: 048
     Dates: start: 20230502
  31. IBRANCE [Suspect]
     Active Substance: PALBOCICLIB
     Dosage: DOSE REDUCED TO 75MG DUE TO CYTOPENIAS,
     Route: 048
     Dates: start: 20230530
  32. IBRANCE [Suspect]
     Active Substance: PALBOCICLIB
     Dosage: DOSE REDUCED TO 75MG DUE TO CYTOPENIAS
     Route: 048
     Dates: start: 20230627
  33. IBRANCE [Suspect]
     Active Substance: PALBOCICLIB
     Dosage: DOSE REDUCED TO 75MG DUE TO CYTOPENIAS
     Route: 048
     Dates: start: 20230725
  34. IBRANCE [Suspect]
     Active Substance: PALBOCICLIB
     Dosage: DOSE REDUCED TO 75MG DUE TO CYTOPENIAS
     Route: 048
     Dates: start: 20230822
  35. IBRANCE [Suspect]
     Active Substance: PALBOCICLIB
     Dosage: DOSE REDUCED TO 75MG DUE TO CYTOPENIAS
     Route: 048
     Dates: start: 20230919
  36. IBRANCE [Suspect]
     Active Substance: PALBOCICLIB
     Dosage: DOSE REDUCED TO 75MG DUE TO CYTOPENIAS
     Route: 048
     Dates: start: 20231017
  37. IBRANCE [Suspect]
     Active Substance: PALBOCICLIB
     Dosage: DOSE REDUCED TO 75MG DUE TO CYTOPENIAS DELAYED DUE TO PATIENT PREF.
     Route: 048
     Dates: start: 20231204
  38. IBRANCE [Suspect]
     Active Substance: PALBOCICLIB
     Dosage: DOSE REDUCED TO 75 MG DUE TO CYTOPENIAS
     Route: 048
     Dates: start: 20240109
  39. IBRANCE [Suspect]
     Active Substance: PALBOCICLIB
     Dosage: DOSE REDUCED TO 75 MG DUE TO CYTOPENIAS
     Route: 048
     Dates: start: 20240212
  40. ARIMIDEX [Suspect]
     Active Substance: ANASTROZOLE
     Indication: Breast cancer female
     Dosage: UNK
     Route: 065
     Dates: start: 20200707
  41. ARIMIDEX [Suspect]
     Active Substance: ANASTROZOLE
     Indication: Bone cancer
     Dosage: DELAYED DUE TO INSURANCE
     Route: 065
     Dates: start: 20200915
  42. ARIMIDEX [Suspect]
     Active Substance: ANASTROZOLE
     Dosage: DELAYED DUE TO NEUTROPENIA
     Route: 065
     Dates: start: 20201022
  43. ARIMIDEX [Suspect]
     Active Substance: ANASTROZOLE
     Dosage: DELAYED DUE TO NEUTROPENIA
     Route: 065
     Dates: start: 20201201
  44. ARIMIDEX [Suspect]
     Active Substance: ANASTROZOLE
     Dosage: UNK
     Route: 065
     Dates: start: 20201229
  45. ARIMIDEX [Suspect]
     Active Substance: ANASTROZOLE
     Dosage: DOSE REDUCED TO 100MG DUE TO CYTOPENIAS. DELAY AND DOSE REDUCTION DUE TO CYTOPENIAS
     Route: 065
     Dates: start: 20210204
  46. ARIMIDEX [Suspect]
     Active Substance: ANASTROZOLE
     Dosage: DOSE REDUCED TO 100MG DUE TO CYTOPENIAS
     Route: 065
     Dates: start: 20210304
  47. ARIMIDEX [Suspect]
     Active Substance: ANASTROZOLE
     Dosage: DOSE REDUCED TO 100MG DUE TO CYTOPENIAS
     Route: 065
     Dates: start: 20210401
  48. ARIMIDEX [Suspect]
     Active Substance: ANASTROZOLE
     Dosage: DOSE REDUCED TO 100MG DUE TO CYTOPENIAS. - DELAYED DUE TO CYTOPENIAS AND PATIENT CONFUSION
     Route: 065
     Dates: start: 20210513
  49. ARIMIDEX [Suspect]
     Active Substance: ANASTROZOLE
     Dosage: DELAYED DUE TO NEUTROPENIA AND INSURANCE
     Route: 065
     Dates: start: 20210622
  50. ARIMIDEX [Suspect]
     Active Substance: ANASTROZOLE
     Dosage: DOSE REDUCED TO 100MG DUE TO CYTOPENIAS, - DELAY DUE TO CYTOPENIAS
     Route: 065
     Dates: start: 20210728
  51. ARIMIDEX [Suspect]
     Active Substance: ANASTROZOLE
     Dosage: DOSE REDUCED TO 100MG DUE TO CYTOPENIAS, - DELAY DUE TO CYTOPENIAS
     Route: 065
     Dates: start: 20210829
  52. ARIMIDEX [Suspect]
     Active Substance: ANASTROZOLE
     Dosage: DOSE REDUCED TO 100MG DUE TO CYTOPENIAS, - DELAY DUE TO CYTOPENIAS
     Route: 065
     Dates: start: 20211004
  53. ARIMIDEX [Suspect]
     Active Substance: ANASTROZOLE
     Dosage: DOSE REDUCED TO 100MG DUE TO CYTOPENIAS, - DELAY DUE TO CYTOPENIAS
     Route: 065
     Dates: start: 20211101
  54. ARIMIDEX [Suspect]
     Active Substance: ANASTROZOLE
     Dosage: DOSE REDUCED TO 100MG DUE TO CYTOPENIAS, - DELAY DUE TO CYTOPENIAS
     Route: 065
     Dates: start: 20211129
  55. ARIMIDEX [Suspect]
     Active Substance: ANASTROZOLE
     Dosage: DOSE REDUCED TO 100MG DUE TO CYTOPENIAS, - DELAY DUE TO CYTOPENIAS
     Route: 065
     Dates: start: 20211230
  56. ARIMIDEX [Suspect]
     Active Substance: ANASTROZOLE
     Dosage: DOSE REDUCED TO 100MG VS 75MG DUE TO CYTOPENIAS
     Route: 065
     Dates: start: 20230127
  57. ARIMIDEX [Suspect]
     Active Substance: ANASTROZOLE
     Dosage: DOSE REDUCED TO 100MG
     Route: 065
     Dates: start: 20220224
  58. ARIMIDEX [Suspect]
     Active Substance: ANASTROZOLE
     Dosage: DOSE REDUCED TO 100MG,- DELAY DUE TO ADMIT.
     Route: 065
     Dates: start: 20220406
  59. ARIMIDEX [Suspect]
     Active Substance: ANASTROZOLE
     Dosage: DOSE REDUCED TO 100MG DUE TO CYTOPENIAS
     Route: 065
     Dates: start: 20220504
  60. ARIMIDEX [Suspect]
     Active Substance: ANASTROZOLE
     Dosage: DOSE REDUCED TO 100MG DUE TO CYTOPENIAS
     Route: 065
     Dates: start: 20220622
  61. ARIMIDEX [Suspect]
     Active Substance: ANASTROZOLE
     Dosage: DOSE REDUCED TO 75MG DUE TO CYTOPENIAS- DELAY DUE TO CYTOPENIAS AND INSURANCE
     Route: 065
     Dates: start: 20221002
  62. ARIMIDEX [Suspect]
     Active Substance: ANASTROZOLE
     Dosage: DOSE REDUCED TO 75MG DUE TO CYTOPENIAS
     Route: 065
     Dates: start: 20221031
  63. ARIMIDEX [Suspect]
     Active Substance: ANASTROZOLE
     Dosage: DOSE REDUCED TO 75MG DUE TO CYTOPENIAS
     Route: 065
     Dates: start: 20221205
  64. ARIMIDEX [Suspect]
     Active Substance: ANASTROZOLE
     Dosage: DOSE REDUCED TO 75MG DUE TO CYTOPENIAS
     Route: 065
     Dates: start: 20230103
  65. ARIMIDEX [Suspect]
     Active Substance: ANASTROZOLE
     Dosage: DOSE REDUCED TO 75MG DUE TO CYTOPENIAS
     Route: 065
     Dates: start: 20230207
  66. ARIMIDEX [Suspect]
     Active Substance: ANASTROZOLE
     Dosage: DOSE REDUCED TO 75MG DUE TO CYTOPENIAS
     Route: 065
     Dates: start: 20230307
  67. ARIMIDEX [Suspect]
     Active Substance: ANASTROZOLE
     Dosage: DOSE REDUCED TO 75 MG DUE TO CYTOPENIAS
     Route: 065
     Dates: start: 20230502
  68. ARIMIDEX [Suspect]
     Active Substance: ANASTROZOLE
     Dosage: DOSE REDUCED TO 75MG DUE TO CYTOPENIAS
     Route: 065
     Dates: start: 20230530
  69. ARIMIDEX [Suspect]
     Active Substance: ANASTROZOLE
     Dosage: DOSE REDUCED TO 75MG DUE TO CYTOPENIAS
     Route: 065
     Dates: start: 20230627
  70. ARIMIDEX [Suspect]
     Active Substance: ANASTROZOLE
     Dosage: DOSE REDUCED TO 75MG DUE TO CYTOPENIAS
     Route: 065
     Dates: start: 20230725
  71. ARIMIDEX [Suspect]
     Active Substance: ANASTROZOLE
     Dosage: DOSE REDUCED TO 75MG DUE TO CYTOPENIAS
     Route: 065
     Dates: start: 20230822
  72. ARIMIDEX [Suspect]
     Active Substance: ANASTROZOLE
     Dosage: DOSE REDUCED TO 75MG DUE TO CYTOPENIAS
     Route: 065
     Dates: start: 20230919
  73. ARIMIDEX [Suspect]
     Active Substance: ANASTROZOLE
     Dosage: DOSE REDUCED TO 75MG DUE TO CYTOPENIAS
     Route: 065
     Dates: start: 20231017
  74. ARIMIDEX [Suspect]
     Active Substance: ANASTROZOLE
     Dosage: DOSE REDUCED TO 75MG DUE TO CYTOPENIAS.- DELAY DUE TO PATIENT PREF
     Route: 065
     Dates: start: 20231204
  75. ARIMIDEX [Suspect]
     Active Substance: ANASTROZOLE
     Dosage: DOSE REDUCED TO 75MG DUE TO CYTOPENIAS
     Route: 065
     Dates: start: 20240109
  76. ARIMIDEX [Suspect]
     Active Substance: ANASTROZOLE
     Dosage: DOSE REDUCED TO 75 MG DUE TO CYTOPENIAS
     Route: 065
     Dates: start: 20240212

REACTIONS (3)
  - Cytopenia [Unknown]
  - Neutropenia [Unknown]
  - Off label use [Unknown]

NARRATIVE: CASE EVENT DATE: 20200529
